FAERS Safety Report 8012015-5 (Version None)
Quarter: 2011Q4

REPORT INFORMATION
  Report Type: 
  Country: None (occurrence: None)
  Receive Date: 20111228
  Receipt Date: 20111207
  Transmission Date: 20120403
  Serious: Yes (Hospitalization)
  Sender: FDA-Public Use
  Company Number: JP-GLAXOSMITHKLINE-B0768036A

PATIENT
  Sex: Female

DRUGS (6)
  1. TOPIRAMATE [Concomitant]
     Dosage: 100MG PER DAY
     Route: 048
     Dates: start: 20110228
  2. NIFELANTERN CR [Concomitant]
     Indication: HYPERTENSION
     Dosage: 40MG PER DAY
     Route: 048
     Dates: start: 20100804
  3. DEPAKENE [Concomitant]
     Dosage: 200MG PER DAY
     Route: 048
     Dates: start: 20100811
  4. LAMICTAL [Suspect]
     Indication: BIPOLAR DISORDER
     Dosage: 25MG ALTERNATE DAYS
     Route: 048
     Dates: start: 20111017, end: 20111028
  5. SENIRAN [Concomitant]
     Dosage: 4MG PER DAY
     Route: 048
     Dates: start: 20110603
  6. LAMICTAL [Suspect]
     Dosage: 25MG PER DAY
     Route: 048
     Dates: start: 20111029, end: 20111119

REACTIONS (2)
  - ECZEMA [None]
  - RASH [None]
